FAERS Safety Report 9717063 (Version 1)
Quarter: 2013Q4

REPORT INFORMATION
  Report Type: Spontaneous
  Country: US (occurrence: US)
  Receive Date: 20131127
  Receipt Date: 20131127
  Transmission Date: 20140711
  Serious: Yes (Other)
  Sender: FDA-Public Use
  Company Number: US-GILEAD-2009-0020793

PATIENT
  Age: 44 Year
  Sex: Female

DRUGS (21)
  1. LETAIRIS [Suspect]
     Indication: PULMONARY ARTERIAL HYPERTENSION
     Route: 048
     Dates: start: 20090128, end: 20090131
  2. VALTREX [Concomitant]
  3. ORTHO-TRICYCLEN LO [Concomitant]
  4. TOPAMAX [Concomitant]
  5. SINGULAIR [Concomitant]
  6. RITALIN [Concomitant]
  7. PROTONIX [Concomitant]
  8. PHENERGAN [Concomitant]
  9. NASACORT [Concomitant]
  10. ALLEGRA [Concomitant]
  11. ALBUTEROL [Concomitant]
  12. PROAIR [Concomitant]
  13. ADVAIR [Concomitant]
  14. METHOTREXATE [Concomitant]
  15. DIFLUCAN [Concomitant]
  16. PREDNISONE [Concomitant]
  17. CYMBALTA [Concomitant]
  18. CARDIZEM [Concomitant]
  19. BUSPAR [Concomitant]
  20. BACTRIM [Concomitant]
  21. AVELOX [Concomitant]

REACTIONS (3)
  - Dyspnoea [Not Recovered/Not Resolved]
  - Face oedema [Not Recovered/Not Resolved]
  - Oedema peripheral [Not Recovered/Not Resolved]
